FAERS Safety Report 9845940 (Version 1)
Quarter: 2013Q4

REPORT INFORMATION
  Report Type: Spontaneous
  Country: US (occurrence: None)
  Receive Date: 20131219
  Receipt Date: 20131219
  Transmission Date: 20140711
  Serious: Yes (Hospitalization)
  Sender: FDA-Public Use
  Company Number: 163-20785-13041705

PATIENT
  Age: 76 Year
  Sex: Male
  Weight: 121.11 kg

DRUGS (24)
  1. THALOMID (THALIDOMIDE) (50 MILLIGRAM, CAPSULES) [Suspect]
     Indication: PLASMA CELL MYELOMA
     Dosage: 50 MG, 1 IN 1 D, PO
     Route: 048
     Dates: start: 20130304, end: 20130408
  2. DEXAMETHASONE (DEXAMETHASONE) [Concomitant]
  3. MELPHALAN (MELPHALAN) [Concomitant]
  4. PREDNISONE (PREDNISONE) [Concomitant]
  5. HUMULIN 70/30 (HUMULIN 70/30) (INJECTION) [Concomitant]
  6. SYNTHROID (LEVOTHYROXINE SODIUM) [Concomitant]
  7. LASIX (FUROSEMIDE) [Concomitant]
  8. KLOR CON (POTASSIUM CHLORIDE) (10 MILLIEQUIVALENTS, UNKNOWN) [Concomitant]
  9. COZAAR (LOSARTAN POTASSIUM) (50 MILLIGRAM, TABLETS) (LOSARTAN POTASSIUM) [Concomitant]
  10. LEXAPRO (ESCITALOPRAM OXALATE) [Concomitant]
  11. ACYCLOVIR (ACICLOVIR) (ACICLOVIR) [Concomitant]
  12. PROTONIX (UNKNOWN) [Concomitant]
  13. NAPROXEN (NAPROXEN) [Concomitant]
  14. GLIMEPERIDE (GLIMEPERIDE) [Concomitant]
  15. LUPRON (LEUPRELIN ACETATE) (INJECTION) [Concomitant]
  16. TRAMADOL (TRAMADOL) [Concomitant]
  17. STOOL SOFTENER (DOCUSATE SODIUM) [Concomitant]
  18. DULCOLAX (BISACODYL) [Concomitant]
  19. VELCADE (BORTEZOMIB) [Concomitant]
  20. PRAVASTATIN (PRAVASTATIN) [Concomitant]
  21. ASA (ACETYLSALICYLIC ACID) [Concomitant]
  22. ALEVE (NAPROXEN SODIUM) [Concomitant]
  23. EYE DROPS (TETRYZOLINE HYDROCHLORIDE) [Concomitant]
  24. ATIVAN (LOSARTAN POTASSIUM (LOSARTAN POTASSIUM) (100 MLLIGRAM, UNKNOWN) [Concomitant]

REACTIONS (3)
  - Pneumonia [None]
  - Rash maculo-papular [None]
  - Pruritus [None]
